FAERS Safety Report 7797398-3 (Version None)
Quarter: 2011Q4

REPORT INFORMATION
  Report Type: 
  Country: None (occurrence: None)
  Receive Date: 20111005
  Receipt Date: 20110928
  Transmission Date: 20120403
  Serious: Yes (Hospitalization, Congenital Anomaly, Other)
  Sender: FDA-Public Use
  Company Number: US-PFIZER INC-2011217138

PATIENT
  Sex: Female
  Weight: 2.94 kg

DRUGS (6)
  1. PRENATAL VITAMINS [Concomitant]
     Dosage: ONE PILL EVERY DAY
     Route: 064
     Dates: start: 20030923
  2. TYLENOL-500 [Concomitant]
     Indication: MIGRAINE
     Dosage: UNK
     Route: 064
     Dates: start: 20031101
  3. ZOLOFT [Suspect]
     Indication: SUICIDAL IDEATION
     Dosage: 50 MG, EVERY DAY
     Route: 064
     Dates: start: 20030919
  4. ZOLOFT [Suspect]
     Indication: HOMICIDAL IDEATION
  5. MAXALT [Concomitant]
     Dosage: UNK
     Route: 064
     Dates: start: 20031203
  6. ZOLOFT [Suspect]
     Indication: DEPRESSION
     Dosage: 25 MG, EVERY DAY
     Route: 064
     Dates: start: 20030915

REACTIONS (16)
  - PULMONARY VALVE STENOSIS [None]
  - TRANSIENT TACHYPNOEA OF THE NEWBORN [None]
  - HEART DISEASE CONGENITAL [None]
  - UMBILICAL HERNIA [None]
  - TRICUSPID VALVE INCOMPETENCE [None]
  - CONGENITAL PULMONARY VALVE ATRESIA [None]
  - MITRAL VALVE INCOMPETENCE [None]
  - VENTRICULAR HYPOKINESIA [None]
  - CONGENITAL HYPOTHYROIDISM [None]
  - MATERNAL EXPOSURE DURING PREGNANCY [None]
  - LEFT VENTRICULAR HYPERTROPHY [None]
  - CARDIOMEGALY [None]
  - PATENT DUCTUS ARTERIOSUS [None]
  - MARASMUS [None]
  - ATRIAL SEPTAL DEFECT [None]
  - SEPSIS NEONATAL [None]
